FAERS Safety Report 9765752 (Version 1)
Quarter: 2013Q4

REPORT INFORMATION
  Report Type: Spontaneous
  Country: US (occurrence: US)
  Receive Date: 20131217
  Receipt Date: 20131217
  Transmission Date: 20140711
  Serious: No
  Sender: FDA-Public Use
  Company Number: US-BIOGENIDEC-2013BI116333

PATIENT
  Age: 51 Year
  Sex: Male

DRUGS (1)
  1. TECFIDERA [Suspect]
     Indication: MULTIPLE SCLEROSIS
     Dates: start: 20130616

REACTIONS (2)
  - Hypoaesthesia [Not Recovered/Not Resolved]
  - Balance disorder [Not Recovered/Not Resolved]
